FAERS Safety Report 5841177-0 (Version None)
Quarter: 2008Q3

REPORT INFORMATION
  Report Type: 
  Country: None (occurrence: None)
  Receive Date: 20080811
  Receipt Date: 20080811
  Transmission Date: 20090109
  Serious: Yes (Death)
  Sender: FDA-Public Use
  Company Number: None

PATIENT
  Age: 30 Year
  Sex: Male
  Weight: 105.2345 kg

DRUGS (2)
  1. METHADONE HCL [Suspect]
     Indication: PAIN
     Dosage: PO
     Route: 048
     Dates: start: 20070407, end: 20070407
  2. XANAX [Suspect]
     Indication: ANXIETY
     Dosage: PO
     Route: 048
     Dates: start: 20070407, end: 20070407

REACTIONS (3)
  - BRONCHOPNEUMONIA [None]
  - DRUG TOXICITY [None]
  - PULMONARY OEDEMA [None]
